FAERS Safety Report 16229934 (Version 1)
Quarter: 2019Q2

REPORT INFORMATION
  Report Type: Report from Study
  Country: US (occurrence: US)
  Receive Date: 20190423
  Receipt Date: 20190423
  Transmission Date: 20190711
  Serious: No
  Sender: FDA-Public Use
  Company Number: US-ALEXION PHARMACEUTICALS INC.-A201905769

PATIENT
  Sex: Female

DRUGS (1)
  1. SOLIRIS [Suspect]
     Active Substance: ECULIZUMAB
     Indication: MYASTHENIA GRAVIS
     Dosage: UNK
     Route: 065

REACTIONS (8)
  - Musculoskeletal pain [Not Recovered/Not Resolved]
  - Glycosylated haemoglobin increased [Unknown]
  - Nerve compression [Unknown]
  - Neck pain [Not Recovered/Not Resolved]
  - Hypoaesthesia [Unknown]
  - Intervertebral disc degeneration [Unknown]
  - Pain in extremity [Not Recovered/Not Resolved]
  - Back pain [Not Recovered/Not Resolved]

NARRATIVE: CASE EVENT DATE: 20190101
